FAERS Safety Report 11896943 (Version 2)
Quarter: 2016Q2

REPORT INFORMATION
  Report Type: Spontaneous
  Country: US (occurrence: US)
  Receive Date: 20160107
  Receipt Date: 20160426
  Transmission Date: 20160815
  Serious: No
  Sender: FDA-Public Use
  Company Number: US-GLAXOSMITHKLINE-US2015GSK183535

PATIENT
  Sex: Female

DRUGS (2)
  1. REQUIP [Suspect]
     Active Substance: ROPINIROLE HYDROCHLORIDE
     Indication: RESTLESS LEGS SYNDROME
     Dosage: 1 MG, QD
  2. ROPINIROLE HYDROCHLORIDE. [Suspect]
     Active Substance: ROPINIROLE HYDROCHLORIDE
     Indication: RESTLESS LEGS SYNDROME
     Dosage: UNK, U

REACTIONS (12)
  - Formication [Unknown]
  - Pain [Unknown]
  - Restless legs syndrome [Unknown]
  - Burning sensation [Unknown]
  - Feeling hot [Unknown]
  - Muscle twitching [Unknown]
  - Drug ineffective [Unknown]
  - Product substitution issue [Unknown]
  - Therapeutic response unexpected [Unknown]
  - Feeling abnormal [Unknown]
  - Condition aggravated [Unknown]
  - Therapeutic response changed [Unknown]
